FAERS Safety Report 6698785-7 (Version None)
Quarter: 2010Q2

REPORT INFORMATION
  Report Type: 
  Country: None (occurrence: None)
  Receive Date: 20100427
  Receipt Date: 20100416
  Transmission Date: 20101027
  Serious: Yes (Other)
  Sender: FDA-Public Use
  Company Number: PHHY2010FR24254

PATIENT
  Age: 77 Year
  Sex: Male

DRUGS (1)
  1. TEGRETOL [Suspect]
     Indication: FACIAL NEURALGIA
     Dosage: 1 DF, QD

REACTIONS (5)
  - ABDOMINAL PAIN [None]
  - BIOPSY COLON ABNORMAL [None]
  - COLITIS [None]
  - DIARRHOEA [None]
  - IMMUNOGLOBULINS INCREASED [None]
